FAERS Safety Report 7154476-X (Version None)
Quarter: 2010Q4

REPORT INFORMATION
  Report Type: 
  Country: None (occurrence: None)
  Receive Date: 20101213
  Receipt Date: 20101122
  Transmission Date: 20110411
  Serious: Yes (Other)
  Sender: FDA-Public Use
  Company Number: FR-AMGEN-FRASP2010003176

PATIENT

DRUGS (3)
  1. ENBREL [Suspect]
     Indication: RHEUMATOID ARTHRITIS
     Route: 058
     Dates: start: 20040101
  2. ARAVA [Suspect]
     Indication: RHEUMATOID ARTHRITIS
     Dosage: 20 MG, QD
     Route: 048
     Dates: start: 20080201, end: 20100927
  3. ARAVA [Suspect]
     Route: 048
     Dates: start: 20100928

REACTIONS (7)
  - CONVULSION [None]
  - EPILEPSY [None]
  - HYPERTENSION [None]
  - HYPOACUSIS [None]
  - NORMAL PRESSURE HYDROCEPHALUS [None]
  - ORTHOSTATIC HYPOTENSION [None]
  - OSTEOARTHRITIS [None]
